FAERS Safety Report 8777715 (Version 3)
Quarter: 2012Q4

REPORT INFORMATION
  Report Type: 
  Country: US (occurrence: US)
  Receive Date: 20120910
  Receipt Date: 20121219
  Transmission Date: 20130627
  Serious: Yes (Hospitalization, Disabling, Other)
  Sender: FDA-Public Use
  Company Number: US-009507513-1206USA03584

PATIENT

DRUGS (8)
  1. FOSAMAX [Suspect]
     Indication: OSTEOPOROSIS PROPHYLAXIS
     Dosage: 70 mg, qw
     Route: 048
     Dates: start: 20021210, end: 200907
  2. FOSAMAX PLUS D [Suspect]
     Indication: OSTEOPOROSIS PROPHYLAXIS
     Dosage: UNK
     Route: 048
     Dates: start: 20021210, end: 200907
  3. ALENDRONATE SODIUM [Suspect]
     Indication: OSTEOPOROSIS PROPHYLAXIS
     Dosage: 70 mg, UNK
     Route: 048
     Dates: start: 20080702, end: 2010
  4. VITAMINS (UNSPECIFIED) [Concomitant]
     Dosage: UNK
     Route: 048
  5. CALTRATE WITH VITAMIN D [Concomitant]
     Dosage: 600-400
     Route: 048
  6. ASCORBIC ACID [Concomitant]
  7. FEMHRT [Concomitant]
     Dosage: UNK
     Dates: end: 20031212
  8. ZOCOR [Concomitant]
     Indication: ESSENTIAL HYPERTENSION
     Dosage: 20 mg, hs
     Route: 048
     Dates: start: 20090303

REACTIONS (36)
  - Low turnover osteopathy [Not Recovered/Not Resolved]
  - Malignant melanoma [Unknown]
  - Closed fracture manipulation [Unknown]
  - Anaemia postoperative [Recovering/Resolving]
  - Salpingo-oophorectomy bilateral [Unknown]
  - Internal fixation of fracture [Unknown]
  - Malignant melanoma [Unknown]
  - Skin neoplasm excision [Unknown]
  - Femur fracture [Unknown]
  - Femur fracture [Not Recovered/Not Resolved]
  - Vitamin D deficiency [Unknown]
  - Adverse event [Unknown]
  - Adverse event [Unknown]
  - Adverse event [Unknown]
  - Hypercholesterolaemia [Unknown]
  - Depression [Unknown]
  - Hysterectomy [Unknown]
  - Dysuria [Unknown]
  - Pollakiuria [Unknown]
  - Endometrial disorder [Unknown]
  - Adenomyosis [Unknown]
  - Uterine leiomyoma [Unknown]
  - Ovarian cyst [Unknown]
  - Anxiety disorder [Unknown]
  - Mitral valve incompetence [Unknown]
  - Tendonitis [Unknown]
  - Vulval disorder [Unknown]
  - Urinary tract infection [Unknown]
  - Menstruation irregular [Unknown]
  - Uterine dilation and curettage [Unknown]
  - Hysteroscopy [Unknown]
  - Postmenopausal haemorrhage [Unknown]
  - Vaginal haemorrhage [Unknown]
  - Haemorrhoids [Unknown]
  - Anaemia [Unknown]
  - Muscle strain [Recovering/Resolving]
